FAERS Safety Report 6741447-8 (Version None)
Quarter: 2010Q2

REPORT INFORMATION
  Report Type: 
  Country: None (occurrence: None)
  Receive Date: 20100526
  Receipt Date: 20100519
  Transmission Date: 20101027
  Serious: Yes (Hospitalization)
  Sender: FDA-Public Use
  Company Number: US-RB-009589-10

PATIENT
  Age: 8 Month
  Sex: Female

DRUGS (3)
  1. SUBOXONE [Suspect]
     Dosage: PIECES OF 8 MG TABLET, UNKNOWN EXACT DOSE
     Route: 002
     Dates: start: 20100517, end: 20100517
  2. COCAINE [Suspect]
     Indication: DRUG USE FOR UNKNOWN INDICATION
     Dosage: UNKNOWN DETAILS
     Route: 065
  3. TEETHING MEDICATION [Concomitant]
     Indication: TEETHING
     Dosage: UNKNOWN DOSING DETIALS
     Route: 065

REACTIONS (3)
  - ACCIDENTAL EXPOSURE [None]
  - FATIGUE [None]
  - MYDRIASIS [None]
